FAERS Safety Report 12037099 (Version 1)
Quarter: 2016Q1

REPORT INFORMATION
  Report Type: Spontaneous
  Country: US (occurrence: None)
  Receive Date: 20160205
  Receipt Date: 20160205
  Transmission Date: 20160526
  Serious: No
  Sender: FDA-Public Use
  Company Number: None

PATIENT
  Age: 56 Year
  Sex: Male

DRUGS (1)
  1. HUMIRA [Suspect]
     Active Substance: ADALIMUMAB
     Indication: AUTOIMMUNE DISORDER
     Dosage: 40 MG, EVERY 14  DAYS, SUBCUTANEOUS
     Route: 058
     Dates: start: 20150728

REACTIONS (2)
  - Decreased immune responsiveness [None]
  - Nocardiosis [None]

NARRATIVE: CASE EVENT DATE: 20160204
